FAERS Safety Report 11849623 (Version 2)
Quarter: 2016Q1

REPORT INFORMATION
  Report Type: Spontaneous
  Country: IT (occurrence: IT)
  Receive Date: 20151218
  Receipt Date: 20160125
  Transmission Date: 20160526
  Serious: No
  Sender: FDA-Public Use
  Company Number: IT-AMGEN-ITASP2015133262

PATIENT
  Age: 16 Year
  Sex: Female

DRUGS (11)
  1. THIOTEPA. [Concomitant]
     Active Substance: THIOTEPA
     Route: 065
  2. VALGANCICLOVIR [Concomitant]
     Active Substance: VALGANCICLOVIR
     Route: 065
  3. GANCICLOVIR. [Concomitant]
     Active Substance: GANCICLOVIR
     Route: 065
  4. CYCLOPHOSPHAMIDE. [Concomitant]
     Active Substance: CYCLOPHOSPHAMIDE
     Indication: PROPHYLAXIS
     Route: 065
  5. NPLATE [Suspect]
     Active Substance: ROMIPLOSTIM
     Indication: THROMBOCYTOPENIA
     Dosage: 1 MUG/KG, QWK
     Route: 065
  6. FLUDARABIN [Concomitant]
     Active Substance: FLUDARABINE PHOSPHATE
     Route: 065
  7. FOSCAVIR [Concomitant]
     Active Substance: FOSCARNET SODIUM
     Route: 065
  8. MYCOPHENOLATE MOFETIL. [Concomitant]
     Active Substance: MYCOPHENOLATE MOFETIL
     Indication: PROPHYLAXIS
     Route: 065
  9. BUSULFAN [Concomitant]
     Active Substance: BUSULFAN
     Route: 065
  10. CYCLOSPORINE. [Concomitant]
     Active Substance: CYCLOSPORINE
     Indication: PROPHYLAXIS
     Route: 065
  11. ETOPOSID [Concomitant]
     Active Substance: ETOPOSIDE

REACTIONS (2)
  - Thrombocytopenia [Recovering/Resolving]
  - Drug ineffective [Unknown]
